FAERS Safety Report 18153254 (Version 3)
Quarter: 2020Q4

REPORT INFORMATION
  Report Type: Spontaneous
  Country: US (occurrence: US)
  Receive Date: 20200815
  Receipt Date: 20201206
  Transmission Date: 20210113
  Serious: Yes (Death, Life-Threatening, Hospitalization)
  Sender: FDA-Public Use
  Company Number: US-SERVIER-S20007654

PATIENT

DRUGS (6)
  1. TN UNSPECIFIED [PREDNISONE ACETATE] [Suspect]
     Active Substance: PREDNISONE ACETATE
     Indication: ACUTE LYMPHOCYTIC LEUKAEMIA
     Dosage: ON DAYS 1 TO 28
     Route: 065
     Dates: start: 20200619
  2. TN UNSPECIFIED [METHOTREXATE SODIUM] [Concomitant]
     Active Substance: METHOTREXATE SODIUM
     Indication: ACUTE LYMPHOCYTIC LEUKAEMIA
     Dosage: ON DAYS 8 AND 29
     Route: 037
     Dates: start: 20200626
  3. TN UNSPECIFIED [CYTARABINE] [Concomitant]
     Active Substance: CYTARABINE
     Indication: ACUTE LYMPHOCYTIC LEUKAEMIA
     Dosage: UNK, ON DAY 1
     Route: 037
     Dates: start: 20200619, end: 20200619
  4. ONCASPAR [Suspect]
     Active Substance: PEGASPARGASE
     Indication: ACUTE LYMPHOCYTIC LEUKAEMIA
     Dosage: 4075 IU (2500 IU/M2) ONE DOSE, ON DAY 4
     Route: 042
     Dates: start: 20200622, end: 20200622
  5. TN UNSPECIFIED [VINCRISTINE SULFATE] [Suspect]
     Active Substance: VINCRISTINE SULFATE
     Indication: ACUTE LYMPHOCYTIC LEUKAEMIA
     Dosage: ON DAYS 1,8,15,22
     Route: 042
     Dates: start: 20200619
  6. TN UNSPECIFIED [DAUNORUBICIN HYDROCHLORIDE] [Suspect]
     Active Substance: DAUNORUBICIN HYDROCHLORIDE
     Indication: ACUTE LYMPHOCYTIC LEUKAEMIA
     Dosage: ON DAYS 1, 8, 15, AND 22
     Route: 042
     Dates: start: 20200619

REACTIONS (10)
  - Metastases to central nervous system [Unknown]
  - Hypercoagulation [Fatal]
  - Febrile neutropenia [Unknown]
  - Cerebellar infarction [Unknown]
  - Cerebral haemorrhage [Unknown]
  - Pulmonary embolism [Unknown]
  - Cerebrovascular accident [Fatal]
  - Cerebral infarction [Unknown]
  - Hydrocephalus [Unknown]
  - Cerebral venous thrombosis [Unknown]

NARRATIVE: CASE EVENT DATE: 20200702
